FAERS Safety Report 5765280-9 (Version None)
Quarter: 2008Q2

REPORT INFORMATION
  Report Type: 
  Country: None (occurrence: None)
  Receive Date: 20080602
  Receipt Date: 20080122
  Transmission Date: 20081010
  Serious: No
  Sender: FDA-Public Use
  Company Number: PHEH2008US01112

PATIENT
  Age: 62 Year
  Sex: Female

DRUGS (3)
  1. TEKTURNA [Suspect]
     Dosage: 150 MG, QD, ORAL
     Route: 048
  2. PROPRANOLOL [Suspect]
  3. DIURETICS(NO INGREDIENTS/SUBSTANCES) [Suspect]

REACTIONS (1)
  - BLOOD PRESSURE DECREASED [None]
